FAERS Safety Report 25287533 (Version 1)
Quarter: 2025Q2

REPORT INFORMATION
  Report Type: Spontaneous
  Country: TW (occurrence: TW)
  Receive Date: 20250509
  Receipt Date: 20250509
  Transmission Date: 20250717
  Serious: Yes (Other)
  Sender: DAIICHI
  Company Number: TW-DSJP-DS-2025-139707-TW

PATIENT
  Age: 59 Year
  Sex: Male

DRUGS (1)
  1. TRASTUZUMAB DERUXTECAN [Suspect]
     Active Substance: TRASTUZUMAB DERUXTECAN
     Indication: Neoplasm
     Route: 065
     Dates: start: 20210519, end: 20211124

REACTIONS (1)
  - Pancytopenia [Unknown]
